FAERS Safety Report 10928011 (Version 1)
Quarter: 2015Q1

REPORT INFORMATION
  Report Type: Spontaneous
  Country: US (occurrence: None)
  Receive Date: 20150317
  Receipt Date: 20150317
  Transmission Date: 20150721
  Serious: Yes (Life-Threatening, Other)
  Sender: FDA-Public Use
  Company Number: None

PATIENT
  Age: 57 Year
  Sex: Male
  Weight: 73.94 kg

DRUGS (6)
  1. OLYSIO [Suspect]
     Active Substance: SIMEPREVIR
     Indication: HEPATITIS C
     Dosage: 1 TABLET
     Route: 048
  2. SOVALDI [Suspect]
     Active Substance: SOFOSBUVIR
     Dosage: 1 TABLET
     Route: 048
  3. SOVALDI [Concomitant]
     Active Substance: SOFOSBUVIR
  4. OLYSIO [Concomitant]
     Active Substance: SIMEPREVIR
  5. OLYSIO [Suspect]
     Active Substance: SIMEPREVIR
     Dosage: 1 TABLET
     Route: 048
  6. SOVALDI [Suspect]
     Active Substance: SOFOSBUVIR
     Indication: HEPATITIS C
     Dosage: 1 TABLET
     Route: 048

REACTIONS (2)
  - Blood creatinine increased [None]
  - Blood urea increased [None]

NARRATIVE: CASE EVENT DATE: 20141211
